FAERS Safety Report 10644196 (Version 1)
Quarter: 2014Q4

REPORT INFORMATION
  Report Type: Spontaneous
  Country: US (occurrence: US)
  Receive Date: 20141210
  Receipt Date: 20141210
  Transmission Date: 20150529
  Serious: Yes (Hospitalization)
  Sender: FDA-Public Use
  Company Number: US-BAYER-2014-181153

PATIENT
  Age: 19 Year
  Sex: Female

DRUGS (3)
  1. ALEVE [Suspect]
     Active Substance: NAPROXEN SODIUM
     Indication: HEADACHE
     Dosage: 1 DF, QD
     Route: 048
  2. BAYER ASPIRIN REGIMEN REGULAR 325 MG STRENGTH [Suspect]
     Active Substance: ASPIRIN
     Indication: SKIN DISORDER
  3. BAYER ASPIRIN REGIMEN REGULAR 325 MG STRENGTH [Suspect]
     Active Substance: ASPIRIN
     Indication: ACNE
     Route: 061

REACTIONS (4)
  - Incorrect route of drug administration [None]
  - Gastric ulcer [Recovered/Resolved]
  - Incorrect drug administration duration [None]
  - Medication error [None]
